FAERS Safety Report 10160884 (Version 3)
Quarter: 2020Q3

REPORT INFORMATION
  Report Type: Report from Study
  Country: MX (occurrence: MX)
  Receive Date: 20140508
  Receipt Date: 20161125
  Transmission Date: 20201104
  Serious: Yes (Life-Threatening, Hospitalization)
  Sender: FDA-Public Use
  Company Number: PHHY2014MX054109

PATIENT
  Age: 46 Year
  Sex: Female

DRUGS (19)
  1. ONARTUZUMAB. [Suspect]
     Active Substance: ONARTUZUMAB
     Dosage: 10 MG/KG, BIW
     Route: 042
     Dates: start: 20131119
  2. FOLINIC ACID [Suspect]
     Active Substance: LEUCOVORIN
     Indication: GASTROOESOPHAGEAL CANCER
     Dosage: UNK
     Route: 042
     Dates: start: 20131104
  3. DEXAMETHASONE. [Concomitant]
     Active Substance: DEXAMETHASONE
     Indication: NAUSEA
     Dosage: 8 MG, UNK
     Route: 042
     Dates: start: 20131128, end: 20131128
  4. TRAMADOL. [Concomitant]
     Active Substance: TRAMADOL
     Indication: ABDOMINAL PAIN
     Dosage: 100 MG, UNK
     Route: 042
     Dates: start: 20131122, end: 20131122
  5. TRAMADOL. [Concomitant]
     Active Substance: TRAMADOL
     Dosage: 300 MG, UNK
     Route: 042
     Dates: start: 20131122, end: 20131126
  6. FLUOROURACIL. [Suspect]
     Active Substance: FLUOROURACIL
     Dosage: 3360 MG, BIW
     Route: 041
     Dates: start: 20131119
  7. OXALIPLATIN. [Suspect]
     Active Substance: OXALIPLATIN
     Indication: GASTROOESOPHAGEAL CANCER
     Dosage: UNK
     Route: 042
     Dates: start: 20131104
  8. ONARTUZUMAB. [Suspect]
     Active Substance: ONARTUZUMAB
     Indication: GASTROOESOPHAGEAL CANCER
     Dosage: 10 MG/KG, QW2
     Route: 042
     Dates: start: 20131104
  9. FLUOROURACIL. [Suspect]
     Active Substance: FLUOROURACIL
     Dosage: 560 MG, BIW
     Route: 040
     Dates: start: 20131119
  10. ONDANSETRON [Concomitant]
     Active Substance: ONDANSETRON
     Dosage: 16 MG, UNK
     Route: 042
     Dates: start: 20131104, end: 20140311
  11. OXALIPLATIN. [Suspect]
     Active Substance: OXALIPLATIN
     Dosage: UNK
     Route: 042
     Dates: start: 20131119
  12. FOLINIC ACID [Suspect]
     Active Substance: LEUCOVORIN
     Dosage: 560 MG, BIW
     Route: 042
     Dates: start: 20131119
  13. FLUOROURACIL. [Suspect]
     Active Substance: FLUOROURACIL
     Indication: GASTROOESOPHAGEAL CANCER
     Dosage: UNK
     Route: 042
     Dates: start: 20131104
  14. INSULIN [Concomitant]
     Active Substance: INSULIN NOS
     Indication: HYPERGLYCAEMIA
     Route: 042
     Dates: start: 20131122
  15. DEXAMETHASONE. [Concomitant]
     Active Substance: DEXAMETHASONE
     Dosage: 16 MG, UNK
     Route: 042
     Dates: start: 20131104, end: 20140312
  16. OXALIPLATIN. [Suspect]
     Active Substance: OXALIPLATIN
     Dosage: 85 MG/M2, BIW
     Route: 042
  17. FLUOROURACIL. [Suspect]
     Active Substance: FLUOROURACIL
     Dosage: 400 MG/M2, BIW
     Route: 042
  18. FOLINIC ACID [Suspect]
     Active Substance: LEUCOVORIN
     Dosage: 400 MG/M2, BIW
     Route: 042
  19. ONDANSETRON [Concomitant]
     Active Substance: ONDANSETRON
     Indication: NAUSEA
     Dosage: 8 MG, UNK
     Route: 042
     Dates: start: 20131128, end: 20131128

REACTIONS (1)
  - Gastrointestinal perforation [Recovered/Resolved]

NARRATIVE: CASE EVENT DATE: 20131122
